FAERS Safety Report 22009530 (Version 1)
Quarter: 2023Q1

REPORT INFORMATION
  Report Type: Spontaneous
  Country: US (occurrence: US)
  Receive Date: 20230220
  Receipt Date: 20230220
  Transmission Date: 20230418
  Serious: No
  Sender: FDA-Public Use
  Company Number: US-GE HEALTHCARE-2023CSU000419

PATIENT
  Age: 64 Year
  Weight: 91.156 kg

DRUGS (2)
  1. OMNIPAQUE [Suspect]
     Active Substance: IOHEXOL
     Indication: Computerised tomogram thorax
     Dosage: 50 ML, SINGLE
     Route: 042
     Dates: start: 20230120, end: 20230120
  2. OMNIPAQUE [Suspect]
     Active Substance: IOHEXOL
     Indication: Lung neoplasm malignant

REACTIONS (1)
  - Sneezing [Recovered/Resolved]

NARRATIVE: CASE EVENT DATE: 20230120
